FAERS Safety Report 17996049 (Version 2)
Quarter: 2020Q3

REPORT INFORMATION
  Report Type: Report from Study
  Country: BR (occurrence: BR)
  Receive Date: 20200708
  Receipt Date: 20200901
  Transmission Date: 20201103
  Serious: Yes (Other)
  Sender: FDA-Public Use
  Company Number: BR-TAKEDA-2019TUS058149

PATIENT
  Age: 73 Year
  Sex: Female

DRUGS (1)
  1. VEDOLIZUMAB [Suspect]
     Active Substance: VEDOLIZUMAB
     Indication: COLITIS ULCERATIVE
     Dosage: 300 MILLIGRAM
     Route: 042
     Dates: start: 20191008

REACTIONS (9)
  - Varicella zoster sepsis [Recovered/Resolved]
  - Asthenia [Unknown]
  - Herpes zoster [Recovered/Resolved]
  - Nausea [Recovered/Resolved]
  - Bowel movement irregularity [Recovering/Resolving]
  - Fatigue [Recovered/Resolved]
  - Malaise [Recovered/Resolved]
  - Frequent bowel movements [Unknown]
  - Decreased immune responsiveness [Unknown]

NARRATIVE: CASE EVENT DATE: 20191008
